FAERS Safety Report 10448633 (Version 2)
Quarter: 2014Q4

REPORT INFORMATION
  Report Type: Spontaneous
  Country: US (occurrence: US)
  Receive Date: 20140912
  Receipt Date: 20141008
  Transmission Date: 20150528
  Serious: Yes (Hospitalization, Other)
  Sender: FDA-Public Use
  Company Number: US-GILEAD-2014-0114893

PATIENT
  Age: 80 Year
  Sex: Female

DRUGS (2)
  1. LETAIRIS [Suspect]
     Active Substance: AMBRISENTAN
     Indication: PRODUCT USED FOR UNKNOWN INDICATION
     Dosage: 5 MG, QD
     Route: 065
     Dates: start: 20140523
  2. WARFARIN [Concomitant]
     Active Substance: WARFARIN

REACTIONS (3)
  - Unevaluable event [Unknown]
  - Sinusitis [Unknown]
  - Intestinal perforation [Unknown]

NARRATIVE: CASE EVENT DATE: 201409
